FAERS Safety Report 24075692 (Version 2)
Quarter: 2024Q3

REPORT INFORMATION
  Report Type: Spontaneous
  Country: BR (occurrence: BR)
  Receive Date: 20240710
  Receipt Date: 20240802
  Transmission Date: 20241016
  Serious: Yes (Other)
  Sender: RANBAXY
  Company Number: BR-SUN PHARMACEUTICAL INDUSTRIES LTD-2024R1-455799

PATIENT
  Age: 76 Year
  Sex: Female
  Weight: 78 kg

DRUGS (5)
  1. CAPECITABINE [Suspect]
     Active Substance: CAPECITABINE
     Indication: Hepatic cancer
     Dosage: UNK UNK, BID (4 TABLETS IN THE MORNING AND 3 TABLETS AT NIGHT FOR 14 DAYS WITH A 7-DAY BREAK)
     Route: 048
     Dates: start: 202405
  2. CAPECITABINE [Suspect]
     Active Substance: CAPECITABINE
     Dosage: UNK UNK, BID (3 TABLETS IN THE MORNING AND 2 TABLETS AT NIGHT FOR 14 DAYS WITH A 7-DAY BREAK)
     Route: 048
     Dates: start: 202405
  3. LOSARTAN POTASSIUM [Concomitant]
     Active Substance: LOSARTAN POTASSIUM
     Indication: Hypertension
     Dosage: 50 MILLIGRAM, QD (1 TABLET ONCE A DAY)
     Route: 065
  4. HYDROCHLOROTHIAZIDE [Concomitant]
     Active Substance: HYDROCHLOROTHIAZIDE
     Indication: Hypertension
     Dosage: 25 MILLIGRAM, QD (1 TABLET ONCE A DAY)
     Route: 065
  5. PURAN [Concomitant]
     Active Substance: LEVOTHYROXINE SODIUM
     Indication: Thyroid disorder
     Dosage: 75 MICROGRAM, QD (1 TABLET ONCE A DAY)
     Route: 065

REACTIONS (1)
  - Palmar-plantar erythrodysaesthesia syndrome [Recovering/Resolving]

NARRATIVE: CASE EVENT DATE: 20240501
